FAERS Safety Report 9304205 (Version 3)
Quarter: 2014Q1

REPORT INFORMATION
  Report Type: Spontaneous
  Country: US (occurrence: US)
  Receive Date: 20130522
  Receipt Date: 20140312
  Transmission Date: 20141002
  Serious: No
  Sender: FDA-Public Use
  Company Number: US-009507513-1305USA011618

PATIENT
  Sex: Male

DRUGS (4)
  1. PROPECIA [Suspect]
     Indication: ALOPECIA
     Dosage: 1 MG, QD
     Route: 048
     Dates: start: 20010716, end: 20080227
  2. PROPECIA [Suspect]
     Dosage: UNK
     Route: 048
     Dates: start: 1998, end: 200812
  3. TUSSIONEX (CHLORPHENIRAMINE POLISTIREX (+) HYDROCODONE POLISTIREX) [Concomitant]
     Indication: HYPERSENSITIVITY
     Dosage: UNK
     Dates: start: 20040903
  4. ZYRTEC [Concomitant]
     Indication: HYPERSENSITIVITY
     Dosage: UNK
     Dates: start: 20060907

REACTIONS (16)
  - Anxiety [Unknown]
  - Hypertension [Unknown]
  - Arthralgia [Unknown]
  - Chronic obstructive pulmonary disease [Not Recovered/Not Resolved]
  - Rheumatoid arthritis [Unknown]
  - Infection [Unknown]
  - Diabetes mellitus [Unknown]
  - Laceration [Unknown]
  - Influenza like illness [Unknown]
  - Helminthic infection [Unknown]
  - Pain in extremity [Recovered/Resolved]
  - Peripheral coldness [Unknown]
  - Libido decreased [Unknown]
  - Sexual dysfunction [Not Recovered/Not Resolved]
  - Erectile dysfunction [Not Recovered/Not Resolved]
  - Depression [Unknown]
